FAERS Safety Report 5421405-6 (Version None)
Quarter: 2007Q3

REPORT INFORMATION
  Report Type: 
  Country: None (occurrence: None)
  Receive Date: 20070821
  Receipt Date: 20070808
  Transmission Date: 20080115
  Serious: Yes (Other)
  Sender: FDA-Public Use
  Company Number: US-ELI_LILLY_AND_COMPANY-US200708002363

PATIENT
  Age: 41 Year
  Sex: Female

DRUGS (6)
  1. CYMBALTA [Suspect]
     Indication: MAJOR DEPRESSION
     Dosage: 30 MG, UNK
  2. GLUCOPHAGE [Concomitant]
  3. TRILEPTAL [Concomitant]
  4. VICODIN [Concomitant]
  5. FLEXERIL [Concomitant]
  6. SUBOXONE [Concomitant]

REACTIONS (1)
  - MYASTHENIA GRAVIS CRISIS [None]
